FAERS Safety Report 22303564 (Version 1)
Quarter: 2023Q2

REPORT INFORMATION
  Report Type: Report from Study
  Country: CN (occurrence: CN)
  Receive Date: 20230510
  Receipt Date: 20230510
  Transmission Date: 20230722
  Serious: Yes (Other)
  Sender: FDA-Public Use
  Company Number: CN-SA-2023SA139173

PATIENT
  Age: 4 Year
  Sex: Female

DRUGS (4)
  1. DUPILUMAB [Suspect]
     Active Substance: DUPILUMAB
     Indication: Dermatitis atopic
     Dosage: 300 MG, 1X
     Route: 058
  2. DUPILUMAB [Suspect]
     Active Substance: DUPILUMAB
     Dosage: UNK UNK, Q4W, SECOND DOSE WAS GIVEN AT AN INTERVAL OF 4 WEEKS
     Route: 058
  3. LORATADINE [Suspect]
     Active Substance: LORATADINE
     Dosage: UNK
  4. CETIRIZINE [Concomitant]
     Active Substance: CETIRIZINE HYDROCHLORIDE
     Dosage: UNK

REACTIONS (7)
  - Generalised tonic-clonic seizure [Recovered/Resolved]
  - Muscle twitching [Recovered/Resolved]
  - Gaze palsy [Recovered/Resolved]
  - Tongue paralysis [Recovered/Resolved]
  - Foaming at mouth [Recovered/Resolved]
  - Epilepsy [Recovered/Resolved]
  - Off label use [Unknown]
